FAERS Safety Report 5990321-3 (Version None)
Quarter: 2008Q4

REPORT INFORMATION
  Report Type: 
  Country: None (occurrence: None)
  Receive Date: 20081211
  Receipt Date: 20080924
  Transmission Date: 20090506
  Serious: No
  Sender: FDA-Public Use
  Company Number: US-BAYER-200834333NA

PATIENT
  Age: 52 Year
  Sex: Male
  Weight: 103 kg

DRUGS (7)
  1. CAMPATH [Suspect]
     Indication: WALDENSTROM'S MACROGLOBULINAEMIA
     Dosage: TOTAL DAILY DOSE: 3 MG  UNIT DOSE: 3 MG
     Route: 058
     Dates: start: 20080922, end: 20080922
  2. CAMPATH [Suspect]
     Dosage: TOTAL DAILY DOSE: 10 MG  UNIT DOSE: 10 MG
     Route: 058
     Dates: start: 20080924, end: 20080924
  3. CAMPATH [Suspect]
     Dosage: TOTAL DAILY DOSE: 30 MG  UNIT DOSE: 30 MG
     Route: 058
     Dates: start: 20080926, end: 20080926
  4. CAMPATH [Suspect]
     Dosage: TOTAL DAILY DOSE: 30 MG  UNIT DOSE: 30 MG
     Route: 058
     Dates: start: 20080929
  5. BENADRYL [Concomitant]
     Indication: PREMEDICATION
     Dosage: AS USED: 150 MG
  6. TYLENOL (CAPLET) [Concomitant]
     Indication: PREMEDICATION
     Dosage: AS USED: 650 MG
  7. COMPANZINE [Concomitant]
     Indication: PREMEDICATION
     Dosage: AS USED: 10 MG

REACTIONS (2)
  - INJECTION SITE ERYTHEMA [None]
  - INJECTION SITE PAIN [None]
